FAERS Safety Report 19045401 (Version 1)
Quarter: 2021Q1

REPORT INFORMATION
  Report Type: Spontaneous
  Country: GB (occurrence: GB)
  Receive Date: 20210323
  Receipt Date: 20210323
  Transmission Date: 20210420
  Serious: Yes (Other)
  Sender: FDA-Public Use
  Company Number: GB-GLAXOSMITHKLINE-GB2021EME057504

PATIENT
  Age: 59 Year
  Sex: Female
  Weight: 64 kg

DRUGS (2)
  1. BENLYSTA [Suspect]
     Active Substance: BELIMUMAB
     Dosage: 500 MG, Z, MONTHLY
     Route: 042
     Dates: start: 20200819, end: 20200819
  2. BENLYSTA [Suspect]
     Active Substance: BELIMUMAB
     Indication: SYSTEMIC LUPUS ERYTHEMATOSUS
     Dosage: 600 MG, Z, MONTHLY
     Route: 042
     Dates: start: 20200304, end: 20200722

REACTIONS (4)
  - Lupus nephritis [Recovered/Resolved with Sequelae]
  - Therapeutic product effect incomplete [Unknown]
  - Nephropathy [Unknown]
  - Protein urine present [Unknown]

NARRATIVE: CASE EVENT DATE: 20200819
